FAERS Safety Report 14972715 (Version 1)
Quarter: 2018Q2

REPORT INFORMATION
  Report Type: Spontaneous
  Country: US (occurrence: US)
  Receive Date: 20180605
  Receipt Date: 20180605
  Transmission Date: 20180711
  Serious: Yes (Death)
  Sender: FDA-Public Use
  Company Number: US-PFIZER INC-2018224929

PATIENT
  Age: 60 Year
  Sex: Male

DRUGS (2)
  1. MYLOTARG [Suspect]
     Active Substance: GEMTUZUMAB OZOGAMICIN
     Dosage: UNK
  2. DACOGEN [Suspect]
     Active Substance: DECITABINE
     Dosage: UNK

REACTIONS (2)
  - Neoplasm progression [Fatal]
  - Off label use [Unknown]
